FAERS Safety Report 10273839 (Version 2)
Quarter: 2014Q3

REPORT INFORMATION
  Report Type: Spontaneous
  Country: BR (occurrence: BR)
  Receive Date: 20140702
  Receipt Date: 20140715
  Transmission Date: 20150326
  Serious: Yes (Death, Hospitalization)
  Sender: FDA-Public Use
  Company Number: BR-SA-2014SA087040

PATIENT
  Age: 63 Year
  Sex: Female
  Weight: 74 kg

DRUGS (10)
  1. TAXOTERE [Suspect]
     Active Substance: DOCETAXEL
     Indication: BREAST CANCER
     Route: 042
     Dates: start: 20140219, end: 20140404
  2. LOSARTAN [Concomitant]
     Active Substance: LOSARTAN
  3. FLAGYL [Concomitant]
     Active Substance: METRONIDAZOLE\METRONIDAZOLE HYDROCHLORIDE
  4. HERCEPTIN [Suspect]
     Active Substance: TRASTUZUMAB
     Indication: BREAST CANCER
     Route: 042
     Dates: start: 20140219, end: 20140404
  5. FLUCONAZOLE. [Concomitant]
     Active Substance: FLUCONAZOLE
  6. CARBOPLATIN. [Suspect]
     Active Substance: CARBOPLATIN
     Indication: BREAST CANCER
     Route: 042
     Dates: start: 20140219, end: 20140404
  7. FILGRASTIM [Concomitant]
     Active Substance: FILGRASTIM
  8. VANCOMYCIN [Concomitant]
     Active Substance: VANCOMYCIN
  9. CEFEPIME [Concomitant]
     Active Substance: CEFEPIME\CEFEPIME HYDROCHLORIDE
  10. MEROPENEM. [Concomitant]
     Active Substance: MEROPENEM

REACTIONS (9)
  - Febrile neutropenia [Fatal]
  - Disorientation [Fatal]
  - Abdominal pain [Fatal]
  - Multi-organ failure [Fatal]
  - Renal failure [Fatal]
  - Diverticulum intestinal [Fatal]
  - Septic shock [Fatal]
  - Pyrexia [Fatal]
  - Hypotension [Fatal]

NARRATIVE: CASE EVENT DATE: 20140320
